FAERS Safety Report 20355506 (Version 1)
Quarter: 2022Q1

REPORT INFORMATION
  Report Type: Spontaneous
  Country: US (occurrence: None)
  Receive Date: 20220119
  Receipt Date: 20220119
  Transmission Date: 20220423
  Serious: Yes (Hospitalization)
  Sender: FDA-Public Use
  Company Number: None

PATIENT
  Age: 42 Year
  Sex: Female
  Weight: 74.9 kg

DRUGS (13)
  1. SOTROVIMAB [Suspect]
     Active Substance: SOTROVIMAB
     Indication: COVID-19
     Dosage: FREQUENCY : ONCE;?
     Route: 040
     Dates: start: 20220112, end: 20220112
  2. APIXABAN [Concomitant]
     Active Substance: APIXABAN
  3. AZITHROMYCIN [Concomitant]
     Active Substance: AZITHROMYCIN
  4. DAPSONE [Concomitant]
     Active Substance: DAPSONE
  5. DENOSUMAB [Concomitant]
     Active Substance: DENOSUMAB
  6. Immune globulin (HYQVIA) [Concomitant]
  7. ISAVUCONAZONIUM [Concomitant]
     Active Substance: ISAVUCONAZONIUM
  8. MYCOPHENOLIC ACID [Concomitant]
     Active Substance: MYCOPHENOLIC ACID
  9. PREDNISONE [Concomitant]
     Active Substance: PREDNISONE
  10. PRUCALOPRIDE [Concomitant]
     Active Substance: PRUCALOPRIDE
  11. TACROLIMUS [Concomitant]
     Active Substance: TACROLIMUS
  12. UBRELVY [Concomitant]
     Active Substance: UBROGEPANT
  13. VALGANCICLOVIR [Concomitant]
     Active Substance: VALGANCICLOVIR

REACTIONS (1)
  - Serum sickness [None]

NARRATIVE: CASE EVENT DATE: 20220114
